FAERS Safety Report 5816505-2 (Version None)
Quarter: 2008Q3

REPORT INFORMATION
  Report Type: 
  Country: None (occurrence: None)
  Receive Date: 20080717
  Receipt Date: 20080717
  Transmission Date: 20090109
  Serious: Yes (Death)
  Sender: FDA-Public Use
  Company Number: None

PATIENT
  Age: 38 Year
  Sex: Male

DRUGS (1)
  1. METHADONE HCL [Suspect]
     Indication: POLYSUBSTANCE DEPENDENCE

REACTIONS (3)
  - ACCIDENTAL DEATH [None]
  - CARDIAC FAILURE [None]
  - MULTIPLE DRUG OVERDOSE [None]
